FAERS Safety Report 23247307 (Version 1)
Quarter: 2023Q4

REPORT INFORMATION
  Report Type: Spontaneous
  Country: US (occurrence: US)
  Receive Date: 20231130
  Receipt Date: 20231130
  Transmission Date: 20240110
  Serious: Yes (Death, Hospitalization, Other)
  Sender: FDA-Public Use
  Company Number: US-MYLANLABS-2023M1127171

PATIENT
  Age: 39 Year
  Sex: Female

DRUGS (2)
  1. LAMOTRIGINE [Suspect]
     Active Substance: LAMOTRIGINE
     Indication: Epilepsy
     Dosage: 75 MILLIGRAM
     Route: 065
  2. LAMOTRIGINE [Suspect]
     Active Substance: LAMOTRIGINE
     Dosage: 100 MILLIGRAM
     Route: 065

REACTIONS (8)
  - Eosinophilic myocarditis [Fatal]
  - Cardiac arrest [Fatal]
  - Cardiac failure [Fatal]
  - Drug reaction with eosinophilia and systemic symptoms [Fatal]
  - Hepatic necrosis [Not Recovered/Not Resolved]
  - Cholangitis [Not Recovered/Not Resolved]
  - Ventricular fibrillation [Not Recovered/Not Resolved]
  - Thyroiditis [Not Recovered/Not Resolved]
